FAERS Safety Report 21217507 (Version 1)
Quarter: 2022Q3

REPORT INFORMATION
  Report Type: Report from Study
  Country: AU (occurrence: AU)
  Receive Date: 20220816
  Receipt Date: 20220816
  Transmission Date: 20221027
  Serious: Yes (Hospitalization, Other)
  Sender: FDA-Public Use
  Company Number: AU-NOVARTISPH-NVSC2020AU177272

PATIENT
  Age: 2 Year
  Sex: Male
  Weight: 11.3 kg

DRUGS (18)
  1. TOPOTECAN [Suspect]
     Active Substance: TOPOTECAN HYDROCHLORIDE
     Indication: Neoplasm malignant
     Dosage: 0.4 MG, QD
     Route: 042
     Dates: start: 20200509, end: 20200614
  2. VENETOCLAX [Suspect]
     Active Substance: VENETOCLAX
     Indication: Neoplasm malignant
     Dosage: 60 MG, QD
     Route: 065
     Dates: start: 20200507, end: 20200507
  3. VENETOCLAX [Suspect]
     Active Substance: VENETOCLAX
     Dosage: 120 MG, QD
     Route: 065
     Dates: start: 20200508, end: 20200619
  4. CYCLOPHOSPHAMIDE [Suspect]
     Active Substance: CYCLOPHOSPHAMIDE
     Indication: Neoplasm malignant
     Dosage: 130 MG, QD, (MAXIMUM OF 5 DAYS EVERY 21 DAYS ( 250 MG/M2, 1 IN 1 DAY))
     Route: 042
     Dates: start: 20200509, end: 20200614
  5. CHLORAMPHENICOL [Concomitant]
     Active Substance: CHLORAMPHENICOL
     Indication: Antibiotic therapy
     Dosage: UNK (APPLICATION TO RIGHT EYE (AS REQUIRED))
     Route: 061
     Dates: start: 20200509
  6. MESNA [Concomitant]
     Active Substance: MESNA
     Indication: Prophylaxis
     Dosage: 120 MG (30 MG 4 IN 1 D)
     Route: 042
     Dates: start: 20200509, end: 20200614
  7. HEPARIN SODIUM [Concomitant]
     Active Substance: HEPARIN SODIUM
     Indication: Central venous catheterisation
     Dosage: 3 ML (AS REQUIRED)
     Route: 042
     Dates: start: 20200507
  8. SULFAMETHOXAZOLE AND TRIMETHOPRIM [Concomitant]
     Active Substance: SULFAMETHOXAZOLE\TRIMETHOPRIM
     Indication: Antifungal prophylaxis
     Dosage: 56 MG (28 MG, 2 IN 1 D)
     Route: 065
     Dates: start: 20200320
  9. SODIUM BICARBONATE [Concomitant]
     Active Substance: SODIUM BICARBONATE
     Indication: Parosmia
     Dosage: 20 ML (5 ML, 4 IN 1 D)
     Route: 048
     Dates: start: 20200507
  10. NILSTAT [Concomitant]
     Active Substance: NYSTATIN
     Indication: Antifungal treatment
     Dosage: 4 ML (1 ML, 4 IN 1 D)
     Route: 048
     Dates: start: 20200507
  11. ONDANSETRON [Concomitant]
     Active Substance: ONDANSETRON
     Indication: Prophylaxis of nausea and vomiting
     Dosage: 3 MG, PRN
     Route: 042
     Dates: start: 20200430
  12. METOCLOPRAMIDE [Concomitant]
     Active Substance: METOCLOPRAMIDE
     Indication: Prophylaxis of nausea and vomiting
     Dosage: 1.5 MG, PRN
     Route: 042
     Dates: start: 20200509
  13. OXYCODONE [Concomitant]
     Active Substance: OXYCODONE
     Indication: Pain
     Dosage: 1 MG (AS REQUIRED)
     Route: 065
     Dates: start: 20200507
  14. LUGOL [Concomitant]
     Active Substance: IODINE\POTASSIUM IODIDE
     Indication: Thyroid therapy
     Dosage: 2 DRP, QD
     Route: 048
     Dates: start: 20200508
  15. ACYCLOVIR [Concomitant]
     Active Substance: ACYCLOVIR
     Indication: Viral infection
     Dosage: 100 MG, BID
     Route: 065
     Dates: start: 20200408
  16. ACYCLOVIR [Concomitant]
     Active Substance: ACYCLOVIR
     Indication: Prophylaxis
  17. PEGFILGRASTIM [Concomitant]
     Active Substance: PEGFILGRASTIM
     Indication: Chemotherapy side effect prophylaxis
     Dosage: STAT 2.5 MG
     Route: 042
     Dates: start: 20200514, end: 20200514
  18. ALLOPURINOL [Concomitant]
     Active Substance: ALLOPURINOL
     Indication: Prophylaxis
     Dosage: 150 MG
     Route: 042
     Dates: start: 20200507, end: 20200511

REACTIONS (12)
  - Febrile neutropenia [Recovered/Resolved]
  - Pyrexia [Unknown]
  - Heart rate increased [Unknown]
  - Clostridial infection [Recovered/Resolved]
  - Neutrophil count decreased [Recovered/Resolved]
  - Anaemia [Unknown]
  - Lymphocyte count decreased [Unknown]
  - Contusion [Unknown]
  - Erythema [Unknown]
  - Rhinorrhoea [Not Recovered/Not Resolved]
  - White blood cell count decreased [Unknown]
  - Facial pain [Not Recovered/Not Resolved]

NARRATIVE: CASE EVENT DATE: 20200518
